FAERS Safety Report 6719023-2 (Version None)
Quarter: 2010Q2

REPORT INFORMATION
  Report Type: 
  Country: None (occurrence: None)
  Receive Date: 20100511
  Receipt Date: 20100504
  Transmission Date: 20101027
  Serious: Yes (Hospitalization, Other)
  Sender: FDA-Public Use
  Company Number: US-JNJFOC-20061006169

PATIENT
  Sex: Male

DRUGS (4)
  1. RISPERDAL [Suspect]
     Indication: DEPRESSION
     Route: 048
  2. RISPERDAL [Suspect]
     Indication: SCHIZOPHRENIA
     Route: 048
  3. SEROQUEL [Suspect]
     Indication: DEPRESSION
     Route: 048
  4. SEROQUEL [Suspect]
     Indication: SCHIZOPHRENIA
     Route: 048

REACTIONS (6)
  - DIABETES MELLITUS [None]
  - DRUG INEFFECTIVE [None]
  - INCREASED APPETITE [None]
  - SUICIDAL IDEATION [None]
  - TREATMENT NONCOMPLIANCE [None]
  - WEIGHT INCREASED [None]
